FAERS Safety Report 6157649-8 (Version None)
Quarter: 2009Q2

REPORT INFORMATION
  Report Type: 
  Country: None (occurrence: None)
  Receive Date: 20090414
  Receipt Date: 20090414
  Transmission Date: 20091009
  Serious: Yes (Life-Threatening)
  Sender: FDA-Public Use
  Company Number: None

PATIENT
  Age: 28 Year
  Sex: Female
  Weight: 90.7194 kg

DRUGS (2)
  1. TOPAMAX [Suspect]
     Indication: MIGRAINE
     Dosage: 25MG DAILY FOR 1ST WK PO
     Route: 048
     Dates: start: 20010601, end: 20010607
  2. TOPAMAX [Suspect]
     Indication: MIGRAINE
     Dosage: 50MG DAILY FOR 2ND WK PO
     Route: 048
     Dates: start: 20010608, end: 20010611

REACTIONS (2)
  - ABNORMAL BEHAVIOUR [None]
  - ROAD TRAFFIC ACCIDENT [None]
